FAERS Safety Report 8834316 (Version 2)
Quarter: 2012Q4

REPORT INFORMATION
  Report Type: 
  Country: GB (occurrence: GB)
  Receive Date: 20121010
  Receipt Date: 20121015
  Transmission Date: 20130627
  Serious: Yes (Other)
  Sender: FDA-Public Use
  Company Number: GB-PFIZER INC-2012246026

PATIENT
  Sex: Male

DRUGS (1)
  1. REFACTO AF [Suspect]

REACTIONS (1)
  - Factor VIII inhibition [Unknown]
